FAERS Safety Report 19923398 (Version 1)
Quarter: 2021Q4

REPORT INFORMATION
  Report Type: Spontaneous
  Country: KR (occurrence: KR)
  Receive Date: 20211006
  Receipt Date: 20211006
  Transmission Date: 20220303
  Serious: Yes (Hospitalization, Other)
  Sender: FDA-Public Use
  Company Number: KR-LUPIN PHARMACEUTICALS INC.-2021-18831

PATIENT
  Age: 58 Year
  Sex: Female

DRUGS (1)
  1. METHYLPREDNISOLONE [Suspect]
     Active Substance: METHYLPREDNISOLONE
     Indication: Demyelination
     Dosage: 250 MILLIGRAM
     Route: 065

REACTIONS (3)
  - Listeria encephalitis [Recovering/Resolving]
  - Condition aggravated [Recovering/Resolving]
  - Encephalitis brain stem [Recovering/Resolving]
